FAERS Safety Report 21928631 (Version 1)
Quarter: 2023Q1

REPORT INFORMATION
  Report Type: Spontaneous
  Country: US (occurrence: US)
  Receive Date: 20230130
  Receipt Date: 20230130
  Transmission Date: 20230418
  Serious: Yes (Death, Other)
  Sender: FDA-Public Use
  Company Number: US-GLENMARK PHARMACEUTICALS-2023GMK078184

PATIENT
  Age: 61 Year
  Sex: Male

DRUGS (1)
  1. LIDOCAINE [Suspect]
     Active Substance: LIDOCAINE
     Indication: Bradycardia
     Dosage: 1 GRAM
     Route: 042

REACTIONS (4)
  - Medication error [Fatal]
  - Overdose [Fatal]
  - Posture abnormal [Fatal]
  - Cardiac arrest [Fatal]
